FAERS Safety Report 4585275-0 (Version None)
Quarter: 2005Q1

REPORT INFORMATION
  Report Type: 
  Country: None (occurrence: None)
  Receive Date: 20050214
  Receipt Date: 20050131
  Transmission Date: 20050727
  Serious: Yes (Hospitalization, Other)
  Sender: FDA-Public Use
  Company Number: 2005017198

PATIENT
  Age: 37 Year
  Sex: Female
  Weight: 52.1637 kg

DRUGS (2)
  1. SOLU-MEDROL [Suspect]
     Indication: ARTHRITIS
     Dosage: (1 GRAM), INTRAVENOUS
     Route: 042
     Dates: start: 20041001
  2. SOLU-MEDROL [Suspect]
     Indication: CONDITION AGGRAVATED
     Dosage: (1 GRAM), INTRAVENOUS
     Route: 042
     Dates: start: 20041001

REACTIONS (14)
  - ABDOMINAL DISTENSION [None]
  - AMENORRHOEA [None]
  - ARTHRALGIA [None]
  - ARTHRITIS [None]
  - ASTHENIA [None]
  - BLOOD URINE PRESENT [None]
  - DEPRESSION [None]
  - FEAR [None]
  - HAEMORRHAGE [None]
  - HYPERSENSITIVITY [None]
  - LIBIDO DECREASED [None]
  - PAIN [None]
  - PHARYNGOLARYNGEAL PAIN [None]
  - SWELLING [None]
